FAERS Safety Report 23074395 (Version 1)
Quarter: 2023Q4

REPORT INFORMATION
  Report Type: Report from Study
  Country: CA (occurrence: CA)
  Receive Date: 20231017
  Receipt Date: 20231017
  Transmission Date: 20240109
  Serious: Yes (Other)
  Sender: FDA-Public Use
  Company Number: CA-MYLANLABS-2023M1108323

PATIENT
  Sex: Female

DRUGS (1)
  1. HULIO [Suspect]
     Active Substance: ADALIMUMAB-FKJP
     Indication: Crohn^s disease
     Dosage: UNK
     Route: 058

REACTIONS (3)
  - Mental impairment [Recovering/Resolving]
  - Feeling abnormal [Recovering/Resolving]
  - Product quality issue [Unknown]
